FAERS Safety Report 8496624-5 (Version None)
Quarter: 2012Q2

REPORT INFORMATION
  Report Type: 
  Country: None (occurrence: None)
  Receive Date: 20120629
  Receipt Date: 20120618
  Transmission Date: 20120825
  Serious: Yes (Other)
  Sender: FDA-Public Use
  Company Number: 2012060093

PATIENT
  Age: 76 Year
  Sex: Male

DRUGS (1)
  1. MUSE [Suspect]
     Indication: ERECTILE DYSFUNCTION
     Dosage: SEE IMAGE

REACTIONS (7)
  - BLADDER PAIN [None]
  - OVERDOSE [None]
  - BONE PAIN [None]
  - URETHRAL PAIN [None]
  - PENILE PAIN [None]
  - PUBIC PAIN [None]
  - DRUG INEFFECTIVE [None]
